FAERS Safety Report 6747724-9 (Version None)
Quarter: 2010Q2

REPORT INFORMATION
  Report Type: 
  Country: None (occurrence: None)
  Receive Date: 20100528
  Receipt Date: 20100527
  Transmission Date: 20101027
  Serious: Yes (Other)
  Sender: FDA-Public Use
  Company Number: GB-ROXANE LABORATORIES, INC.-2010-RO-00648RO

PATIENT
  Age: 75 Year
  Sex: Female

DRUGS (1)
  1. AZATHIOPRINE SODIUM [Suspect]
     Indication: RHEUMATOID ARTHRITIS

REACTIONS (2)
  - EPSTEIN-BARR VIRUS INFECTION [None]
  - MUCOCUTANEOUS ULCERATION [None]
